FAERS Safety Report 25754530 (Version 3)
Quarter: 2025Q4

REPORT INFORMATION
  Report Type: Spontaneous
  Country: EU (occurrence: EU)
  Receive Date: 20250903
  Receipt Date: 20251006
  Transmission Date: 20260118
  Serious: Yes (Life-Threatening, Other)
  Sender: CELLTRION
  Company Number: EU-CELLTRION INC.-2025FR030911

PATIENT

DRUGS (8)
  1. RITUXIMAB [Suspect]
     Active Substance: RITUXIMAB
     Indication: Nephrotic syndrome
     Dosage: AT AGE OF 18 YEARS, AFTER ANOTHER RELAPSE, A FIRST RITUXIMAB TREATMENT LED TO COMPLETE REMISSION FOR
  2. RITUXIMAB [Suspect]
     Active Substance: RITUXIMAB
     Dosage: SECOND RITUXIMAB TREATMENT AT AGE OF 21 YEARS
  3. RITUXIMAB [Suspect]
     Active Substance: RITUXIMAB
     Dosage: THIRD RITUXIMAB TREATMENT AT AGE OF 23 YEARS
  4. MABTHERA [Suspect]
     Active Substance: RITUXIMAB
     Indication: Nephrotic syndrome
  5. CELLCEPT [Suspect]
     Active Substance: MYCOPHENOLATE MOFETIL
     Indication: Nephrotic syndrome
     Route: 065
  6. CYCLOSPORINE [Suspect]
     Active Substance: CYCLOSPORINE
     Indication: Portal vein thrombosis
     Dosage: 160 MG/DAY (80 MGX2)
     Route: 042
  7. CYCLOSPORINE [Suspect]
     Active Substance: CYCLOSPORINE
     Dosage: UNK
     Route: 048
  8. OBINUTUZUMAB [Suspect]
     Active Substance: OBINUTUZUMAB
     Indication: Nephrotic syndrome
     Dosage: 1000 MILLIGRAM ON DAYS 1 AND 15
     Route: 065

REACTIONS (8)
  - Laryngospasm [Unknown]
  - Acute respiratory distress syndrome [Recovering/Resolving]
  - Peritonitis [Unknown]
  - COVID-19 [Recovering/Resolving]
  - Diarrhoea [Unknown]
  - Drug hypersensitivity [Unknown]
  - Off label use [Unknown]
  - Drug ineffective for unapproved indication [Unknown]
